FAERS Safety Report 12777248 (Version 1)
Quarter: 2016Q3

REPORT INFORMATION
  Report Type: Spontaneous
  Country: GB (occurrence: GB)
  Receive Date: 20160924
  Receipt Date: 20160924
  Transmission Date: 20161109
  Serious: Yes (Hospitalization)
  Sender: FDA-Public Use
  Company Number: GB-AMGEN-GBRSP2016130297

PATIENT
  Age: 49 Year
  Sex: Male
  Weight: 113 kg

DRUGS (2)
  1. ENBREL [Suspect]
     Active Substance: ETANERCEPT
     Indication: ANKYLOSING SPONDYLITIS
     Dosage: 50 MG, WEEKLY
     Route: 065
     Dates: start: 20160120, end: 20160420
  2. HUMIRA [Suspect]
     Active Substance: ADALIMUMAB
     Indication: ANKYLOSING SPONDYLITIS
     Dosage: 40 MG, UNK
     Route: 058
     Dates: start: 20150803, end: 20151123

REACTIONS (12)
  - Intervertebral disc protrusion [Recovering/Resolving]
  - Nerve root compression [Recovering/Resolving]
  - Post procedural discharge [Recovered/Resolved]
  - Staphylococcal infection [Recovered/Resolved]
  - Anal hypoaesthesia [Recovering/Resolving]
  - Induration [Recovered/Resolved]
  - Post procedural complication [Recovered/Resolved]
  - Sexual dysfunction [Recovering/Resolving]
  - Postoperative wound infection [Recovered/Resolved]
  - Intervertebral disc space narrowing [Recovering/Resolving]
  - Intervertebral disc degeneration [Recovering/Resolving]
  - Genital hypoaesthesia [Recovering/Resolving]

NARRATIVE: CASE EVENT DATE: 20160614
